FAERS Safety Report 10246785 (Version 2)
Quarter: 2014Q3

REPORT INFORMATION
  Report Type: Report from Study
  Country: HN (occurrence: HN)
  Receive Date: 20140619
  Receipt Date: 20140711
  Transmission Date: 20150326
  Serious: Yes (Other)
  Sender: FDA-Public Use
  Company Number: PHHY2014HN075989

PATIENT
  Age: 37 Year
  Sex: Male
  Weight: 100.4 kg

DRUGS (2)
  1. GLIVEC [Suspect]
     Active Substance: IMATINIB MESYLATE
     Indication: CHRONIC MYELOID LEUKAEMIA
     Dosage: 400 MG, UNK
     Route: 048
     Dates: start: 20100605
  2. GLIVEC [Suspect]
     Active Substance: IMATINIB MESYLATE
     Dosage: 400 MG, UNK
     Dates: start: 20130124

REACTIONS (9)
  - Proteinuria [Unknown]
  - Oedema peripheral [Unknown]
  - Protein total decreased [Unknown]
  - Low density lipoprotein increased [Unknown]
  - Haematuria [Unknown]
  - Nephropathy [Unknown]
  - Blood triglycerides increased [Unknown]
  - Hypertension [Recovering/Resolving]
  - Blood cholesterol increased [Unknown]

NARRATIVE: CASE EVENT DATE: 201306
